FAERS Safety Report 23723034 (Version 2)
Quarter: 2024Q3

REPORT INFORMATION
  Report Type: Report from Study
  Country: GB (occurrence: GB)
  Receive Date: 20240409
  Receipt Date: 20240716
  Transmission Date: 20241016
  Serious: No
  Sender: SANDOZ
  Company Number: GB-SANDOZ-SDZ2024GB017629

PATIENT
  Sex: Male

DRUGS (1)
  1. HYRIMOZ [Suspect]
     Active Substance: ADALIMUMAB-ADAZ
     Indication: Spinal osteoarthritis
     Dosage: 40 MG, Q2W (40MG/0.8ML SOLUTION FOR INJECTION  PRE-FILLED PEN)
     Route: 058
     Dates: start: 20240111

REACTIONS (5)
  - Fatigue [Recovered/Resolved]
  - Injection site erythema [Recovered/Resolved]
  - Urticaria [Recovered/Resolved]
  - Pruritus [Recovered/Resolved]
  - Injection site rash [Unknown]
